FAERS Safety Report 5242662-5 (Version None)
Quarter: 2007Q1

REPORT INFORMATION
  Report Type: 
  Country: None (occurrence: None)
  Receive Date: 20070214
  Receipt Date: 20070201
  Transmission Date: 20070707
  Serious: Yes (Hospitalization, Other)
  Sender: FDA-Public Use
  Company Number: 2006BL005873

PATIENT
  Age: 44 Year
  Sex: Female

DRUGS (3)
  1. MINIMS PREDNISOLONE SODIUM PHOSPHAE (PREDNISOLONE SODIUM PHOSPHATE) [Suspect]
     Indication: ANAEMIA HAEMOLYTIC AUTOIMMUNE
     Dosage: 30 MILLIGRAMS;DAILY; ORAL
     Route: 048
  2. NEOLAB COTRIMOXAZOLE [Concomitant]
  3. PREDNISOLONE [Concomitant]

REACTIONS (8)
  - BRAIN ABSCESS [None]
  - CENTRAL NERVOUS SYSTEM INFECTION [None]
  - DISORIENTATION [None]
  - FACIAL PALSY [None]
  - HEMIPLEGIA [None]
  - MUSCULAR WEAKNESS [None]
  - NOCARDIOSIS [None]
  - PLEURAL EFFUSION [None]
